FAERS Safety Report 8922986 (Version 1)
Quarter: 2012Q4

REPORT INFORMATION
  Report Type: 
  Country: GB (occurrence: GB)
  Receive Date: 20121123
  Receipt Date: 20121123
  Transmission Date: 20130627
  Serious: Yes (Other)
  Sender: FDA-Public Use
  Company Number: GB-PFIZER INC-2012289513

PATIENT
  Age: 29 Year
  Sex: Male
  Weight: 50.8 kg

DRUGS (2)
  1. CHAMPIX [Suspect]
     Indication: SMOKING CESSATION THERAPY
     Dosage: 0.5 mg, UNK
     Route: 048
     Dates: start: 20121105, end: 20121106
  2. MIRTAZAPINE [Concomitant]
     Dosage: UNK

REACTIONS (10)
  - Anger [Recovering/Resolving]
  - Suicidal ideation [Recovering/Resolving]
  - Pain [Recovering/Resolving]
  - Agitation [Recovering/Resolving]
  - Restlessness [Recovering/Resolving]
  - Speech disorder [Recovering/Resolving]
  - Gastrointestinal disorder [Recovering/Resolving]
  - Nightmare [Recovering/Resolving]
  - Medication error [Unknown]
  - Drug ineffective [Unknown]
